FAERS Safety Report 22231631 (Version 1)
Quarter: 2023Q2

REPORT INFORMATION
  Report Type: Report from Study
  Country: BR (occurrence: BR)
  Receive Date: 20230420
  Receipt Date: 20230420
  Transmission Date: 20230721
  Serious: Yes (Other)
  Sender: FDA-Public Use
  Company Number: BR-TAKEDA-2021TUS044614

PATIENT
  Age: 48 Year
  Sex: Male

DRUGS (2)
  1. VEDOLIZUMAB [Suspect]
     Active Substance: VEDOLIZUMAB
     Indication: Crohn^s disease
     Dosage: 300 MILLIGRAM
     Route: 042
     Dates: start: 20210703
  2. Sinutab [Concomitant]
     Indication: Sinusitis
     Dosage: UNK

REACTIONS (6)
  - Intestinal operation [Unknown]
  - Somnolence [Unknown]
  - Diarrhoea [Unknown]
  - Infection [Unknown]
  - Gastrointestinal inflammation [Unknown]
  - Abdominal distension [Unknown]

NARRATIVE: CASE EVENT DATE: 20220701
